FAERS Safety Report 8057504-2 (Version None)
Quarter: 2012Q1

REPORT INFORMATION
  Report Type: 
  Country: None (occurrence: None)
  Receive Date: 20120119
  Receipt Date: 20120110
  Transmission Date: 20120608
  Serious: Yes (Other)
  Sender: FDA-Public Use
  Company Number: US-ASTRAZENECA-2012SE01840

PATIENT
  Age: 55 Year
  Sex: Male

DRUGS (1)
  1. ENTOCORT EC [Suspect]
     Route: 048

REACTIONS (4)
  - DRUG DOSE OMISSION [None]
  - SKIN CHAPPED [None]
  - SKIN HAEMORRHAGE [None]
  - MYOCARDIAL INFARCTION [None]
